FAERS Safety Report 5147232-5 (Version None)
Quarter: 2006Q4

REPORT INFORMATION
  Report Type: 
  Country: None (occurrence: None)
  Receive Date: 20061102
  Receipt Date: 20061023
  Transmission Date: 20070319
  Serious: Yes (Hospitalization)
  Sender: FDA-Public Use
  Company Number: 2006BI013866

PATIENT
  Age: 44 Year
  Sex: Female
  Weight: 63.5036 kg

DRUGS (7)
  1. AVONEX [Suspect]
     Indication: MULTIPLE SCLEROSIS
     Dosage: 30 UG;QW;IM
     Route: 030
     Dates: start: 19980101, end: 20030101
  2. AVONEX [Suspect]
     Indication: MULTIPLE SCLEROSIS
     Dosage: 30 UG;QW;IM
     Route: 030
     Dates: start: 20030101, end: 20040101
  3. ALBUTEROL [Concomitant]
  4. NEXIUM [Concomitant]
  5. METOCLOPRAM [Concomitant]
  6. EFFEXOR [Concomitant]
  7. LAMICTAL [Concomitant]

REACTIONS (3)
  - ENDOMETRIOSIS [None]
  - INFLUENZA LIKE ILLNESS [None]
  - PITUITARY TUMOUR [None]
